FAERS Safety Report 16404421 (Version 1)
Quarter: 2019Q3

REPORT INFORMATION
  Report Type: Spontaneous
  Country: US (occurrence: US)
  Receive Date: 20190604
  Receipt Date: 20190604
  Transmission Date: 20191004
  Serious: No
  Sender: FDA-Public Use
  Company Number: None

PATIENT
  Sex: Female
  Weight: 94.5 kg

DRUGS (1)
  1. PEACHYPURE SUPPOSITORIES [Suspect]
     Active Substance: ALOE VERA LEAF\BORIC ACID
     Indication: BACTERIAL VAGINOSIS
     Dosage: ?          QUANTITY:28 CAPSULE(S);?
     Dates: start: 20190102, end: 20190109

REACTIONS (2)
  - Haemorrhage [None]
  - Skin odour abnormal [None]
